FAERS Safety Report 5237697-2 (Version None)
Quarter: 2007Q1

REPORT INFORMATION
  Report Type: 
  Country: None (occurrence: None)
  Receive Date: 20070214
  Receipt Date: 20070201
  Transmission Date: 20070707
  Serious: Yes (Hospitalization)
  Sender: FDA-Public Use
  Company Number: PHBS2007HN02067

PATIENT
  Age: 68 Year
  Sex: Female

DRUGS (2)
  1. VALSARTAN AND HYDROCHLOROTHIAZIDE [Suspect]
     Indication: HYPERTENSION
     Dosage: VALS 160 / HCT 12.5 MG/DAY
     Route: 048
     Dates: start: 20020101, end: 20061101
  2. ASPIRIN [Concomitant]
     Dosage: 81 MG/15 DAYUS
     Route: 030

REACTIONS (1)
  - ACUTE MYOCARDIAL INFARCTION [None]
